FAERS Safety Report 4587764-1 (Version None)
Quarter: 2005Q1

REPORT INFORMATION
  Report Type: 
  Country: None (occurrence: None)
  Receive Date: 20050125
  Receipt Date: 20040812
  Transmission Date: 20050727
  Serious: No
  Sender: FDA-Public Use
  Company Number: USA030638850

PATIENT
  Age: 74 Year
  Sex: Female
  Weight: 58.9676 kg

DRUGS (12)
  1. FORTEO [Suspect]
     Indication: OSTEOPOROSIS
     Dosage: 20 UG/1 DAY
     Dates: start: 20030501
  2. COUMADIN [Concomitant]
  3. PREDNISONE [Concomitant]
  4. TENORMIN [Concomitant]
  5. XANAX [Concomitant]
  6. FERROUS SULFATE TAB [Concomitant]
  7. LOPRESSOR [Concomitant]
  8. CENTRUM [Concomitant]
  9. LORTAB [Concomitant]
  10. LASIX [Concomitant]
  11. POTASSIUM CHLORIDE [Concomitant]
  12. CALTRATE + D [Concomitant]

REACTIONS (6)
  - BLOOD PRESSURE INCREASED [None]
  - BODY HEIGHT DECREASED [None]
  - INJECTION SITE ERYTHEMA [None]
  - PIGMENTATION DISORDER [None]
  - PROTHROMBIN TIME PROLONGED [None]
  - PULSE PRESSURE INCREASED [None]
